FAERS Safety Report 8226073-6 (Version None)
Quarter: 2012Q1

REPORT INFORMATION
  Report Type: 
  Country: None (occurrence: None)
  Receive Date: 20120307
  Receipt Date: 20110331
  Transmission Date: 20120608
  Serious: Yes (Death)
  Sender: FDA-Public Use
  Company Number: ABMIR-11-0138

PATIENT
  Sex: Female

DRUGS (7)
  1. ASPIRIN [Concomitant]
  2. FOLIC ACID [Concomitant]
  3. ABRAXANE [Suspect]
     Indication: BREAST CANCER METASTATIC
     Dates: start: 20100728, end: 20101105
  4. ADVAIR HFA [Concomitant]
  5. ADAVANT [Concomitant]
  6. ASCORBIC ACID [Concomitant]
  7. DECADRON [Concomitant]

REACTIONS (1)
  - DEATH [None]
